FAERS Safety Report 17616044 (Version 1)
Quarter: 2020Q2

REPORT INFORMATION
  Report Type: Spontaneous
  Country: US (occurrence: US)
  Receive Date: 20200402
  Receipt Date: 20200402
  Transmission Date: 20200713
  Serious: Yes (Death)
  Sender: FDA-Public Use
  Company Number: None

PATIENT
  Sex: Male

DRUGS (19)
  1. PROLIA [Suspect]
     Active Substance: DENOSUMAB
     Indication: SENILE OSTEOPOROSIS
     Dosage: ?          OTHER FREQUENCY:EVERY SIX MONTHS;?
     Route: 048
     Dates: start: 20151210
  2. FISH OIL [Concomitant]
     Active Substance: FISH OIL
  3. CALTRATE [Concomitant]
     Active Substance: CALCIUM CARBONATE
  4. ATIVAN [Concomitant]
     Active Substance: LORAZEPAM
  5. MELATONIN [Concomitant]
     Active Substance: MELATONIN
  6. ULTRAM [Concomitant]
     Active Substance: TRAMADOL HYDROCHLORIDE
  7. COLONAIDE [Concomitant]
  8. LIPITOR [Concomitant]
     Active Substance: ATORVASTATIN CALCIUM
  9. ZANTAC [Concomitant]
     Active Substance: RANITIDINE HYDROCHLORIDE
  10. CENTRUM [Concomitant]
     Active Substance: VITAMINS
  11. AVODART [Concomitant]
     Active Substance: DUTASTERIDE
  12. OSTEO BI-FLX [Concomitant]
  13. ASPIRIN. [Concomitant]
     Active Substance: ASPIRIN
  14. COQ10 [Concomitant]
     Active Substance: UBIDECARENONE
  15. METOPROLOL TARTRATE. [Concomitant]
     Active Substance: METOPROLOL TARTRATE
  16. NEURONTIN [Concomitant]
     Active Substance: GABAPENTIN
  17. AVAPRO [Concomitant]
     Active Substance: IRBESARTAN
  18. FLOMAX [Concomitant]
     Active Substance: TAMSULOSIN HYDROCHLORIDE
  19. COLACE [Concomitant]
     Active Substance: DOCUSATE SODIUM

REACTIONS (1)
  - Death [None]
